FAERS Safety Report 5860313-3 (Version None)
Quarter: 2008Q3

REPORT INFORMATION
  Report Type: 
  Country: None (occurrence: None)
  Receive Date: 20080827
  Receipt Date: 20070828
  Transmission Date: 20090109
  Serious: No
  Sender: FDA-Public Use
  Company Number: US-ABBOTT-07P-163-0415216-00

PATIENT
  Sex: Female

DRUGS (2)
  1. COATED PDS [Suspect]
     Indication: BLOOD TRIGLYCERIDES INCREASED
     Route: 048
     Dates: start: 20070825, end: 20070826
  2. COATED PDS [Suspect]
     Route: 048
     Dates: start: 20060801, end: 20070825

REACTIONS (3)
  - FLUSHING [None]
  - SWELLING FACE [None]
  - URTICARIA [None]
